FAERS Safety Report 9131440 (Version 1)
Quarter: 2013Q1

REPORT INFORMATION
  Report Type: Spontaneous
  Country: US (occurrence: US)
  Receive Date: 20130301
  Receipt Date: 20130301
  Transmission Date: 20140127
  Serious: No
  Sender: FDA-Public Use
  Company Number: US-MYLANLABS-2012S1004858

PATIENT
  Age: 16 Year
  Sex: Male

DRUGS (4)
  1. AMNESTEEM CAPSULES [Suspect]
     Indication: ACNE
     Route: 048
     Dates: start: 20120206, end: 20120306
  2. ADDERALL [Concomitant]
     Dates: start: 20120218
  3. ADDERALL [Concomitant]
     Dates: start: 20120218
  4. AUGMENTIN [Concomitant]
     Dates: start: 20120208, end: 20120218

REACTIONS (1)
  - Abnormal behaviour [Not Recovered/Not Resolved]
